FAERS Safety Report 8497459-X (Version None)
Quarter: 2012Q3

REPORT INFORMATION
  Report Type: 
  Country: None (occurrence: None)
  Receive Date: 20120709
  Receipt Date: 20120612
  Transmission Date: 20120928
  Serious: No
  Sender: FDA-Public Use
  Company Number: US-AMGEN-USASP2012036867

PATIENT
  Age: 49 Year
  Sex: Male

DRUGS (3)
  1. ENBREL [Suspect]
     Indication: PSORIATIC ARTHROPATHY
     Dosage: 50 MG, QWK
     Dates: start: 20120401
  2. LISINOPRIL [Concomitant]
     Dosage: 1 MG, QD
  3. LOPRESSOR [Concomitant]
     Dosage: 1 MG, QD

REACTIONS (1)
  - INJECTION SITE HAEMATOMA [None]
